FAERS Safety Report 9661791 (Version 1)
Quarter: 2013Q4

REPORT INFORMATION
  Report Type: Spontaneous
  Country: FR (occurrence: None)
  Receive Date: 20131030
  Receipt Date: 20131030
  Transmission Date: 20140711
  Serious: Yes (Hospitalization)
  Sender: FDA-Public Use
  Company Number: SYM-2013-12108

PATIENT
  Age: 90 Year
  Sex: Female

DRUGS (2)
  1. FLAGYL (METRONIDAZOLE) (METRONIDAZOLE) [Suspect]
     Indication: LUNG DISORDER
     Dates: start: 201306, end: 20130630
  2. ROCEPHINE (CEFTRIAXONE SODIUM) (CETRIAXONE SODIUM) [Suspect]
     Indication: LUNG DISORDER
     Dates: start: 201306, end: 20130630

REACTIONS (3)
  - Acute generalised exanthematous pustulosis [None]
  - Bacterial infection [None]
  - Legionella test positive [None]
